FAERS Safety Report 4449810-5 (Version None)
Quarter: 2004Q3

REPORT INFORMATION
  Report Type: 
  Country: None (occurrence: None)
  Receive Date: 20040802
  Receipt Date: 20031020
  Transmission Date: 20050211
  Serious: Yes (Other)
  Sender: FDA-Public Use
  Company Number: US-SHR-03-009284

PATIENT
  Age: 59 Year
  Sex: Male
  Weight: 77.1 kg

DRUGS (2)
  1. MAGNEVIST [Suspect]
     Indication: NUCLEAR MAGNETIC RESONANCE IMAGING BRAIN
     Dosage: 6 ML, 1 DOSE, INTRAVENOUS
     Route: 042
     Dates: start: 20030108, end: 20030108
  2. LIPITOR [Concomitant]

REACTIONS (3)
  - INJECTION SITE REACTION [None]
  - SIMPLE PARTIAL SEIZURES [None]
  - SINUS BRADYCARDIA [None]
